FAERS Safety Report 20408276 (Version 1)
Quarter: 2022Q1

REPORT INFORMATION
  Report Type: Spontaneous
  Country: CN (occurrence: CN)
  Receive Date: 20220201
  Receipt Date: 20220201
  Transmission Date: 20220423
  Serious: Yes (Other)
  Sender: FDA-Public Use
  Company Number: CN-JNJFOC-20220157123

PATIENT

DRUGS (1)
  1. RHINOCORT AQUA [Suspect]
     Active Substance: BUDESONIDE
     Indication: Asthma
     Dosage: 128 G/TIME
     Route: 055

REACTIONS (7)
  - Product use in unapproved indication [Unknown]
  - Off label use [Unknown]
  - Incorrect route of product administration [Unknown]
  - Anaphylactic reaction [Unknown]
  - Gastrointestinal disorder [Unknown]
  - Dizziness [Unknown]
  - Therapeutic response unexpected [Unknown]
